FAERS Safety Report 9538721 (Version 2)
Quarter: 2013Q4

REPORT INFORMATION
  Report Type: Spontaneous
  Country: IT (occurrence: IT)
  Receive Date: 20130920
  Receipt Date: 20131011
  Transmission Date: 20140711
  Serious: Yes (Hospitalization, Other)
  Sender: FDA-Public Use
  Company Number: PHHY2013IT104430

PATIENT
  Sex: Female

DRUGS (2)
  1. EXJADE [Suspect]
     Indication: THALASSAEMIA
     Dosage: 28 MG/KG, DAILY
     Route: 048
     Dates: start: 20121018, end: 20130306
  2. EXJADE [Suspect]
     Dosage: UNK UKN, UNK
     Route: 048

REACTIONS (2)
  - Adenocarcinoma [Unknown]
  - Hepatic cancer [Unknown]
